FAERS Safety Report 6855666-3 (Version None)
Quarter: 2010Q3

REPORT INFORMATION
  Report Type: 
  Country: None (occurrence: None)
  Receive Date: 20100719
  Receipt Date: 20090922
  Transmission Date: 20110219
  Serious: No
  Sender: FDA-Public Use
  Company Number: US-KINGPHARMUSA00001-K200901174

PATIENT
  Sex: Female

DRUGS (3)
  1. LEVOXYL [Suspect]
     Indication: THYROID DISORDER
     Dosage: 50 MCG, QD
     Route: 048
     Dates: start: 20070101
  2. CYTOMEL [Concomitant]
     Indication: THYROID DISORDER
     Dosage: 5 MG, BID
     Route: 048
  3. VITAMINS [Concomitant]
     Route: 048

REACTIONS (5)
  - BONE PAIN [None]
  - DRUG EFFECT DECREASED [None]
  - HEADACHE [None]
  - MUSCULOSKELETAL STIFFNESS [None]
  - NECK PAIN [None]
